FAERS Safety Report 19296475 (Version 1)
Quarter: 2021Q2

REPORT INFORMATION
  Report Type: Spontaneous
  Country: CA (occurrence: CA)
  Receive Date: 20210524
  Receipt Date: 20210524
  Transmission Date: 20210717
  Serious: Yes (Other)
  Sender: FDA-Public Use
  Company Number: CA-BAUSCH-BL-2021-017901

PATIENT

DRUGS (1)
  1. WELLBUTRIN [Suspect]
     Active Substance: BUPROPION HYDROCHLORIDE
     Indication: PRODUCT USED FOR UNKNOWN INDICATION
     Dosage: EXTENDED RELEASE
     Route: 065

REACTIONS (7)
  - Respiratory arrest [Unknown]
  - Agitation [Unknown]
  - Visual impairment [Unknown]
  - Dizziness [Unknown]
  - Dysphagia [Unknown]
  - Sleep disorder [Unknown]
  - Headache [Unknown]
